APPROVED DRUG PRODUCT: LEVORPHANOL TARTRATE
Active Ingredient: LEVORPHANOL TARTRATE
Strength: 2MG
Dosage Form/Route: TABLET;ORAL
Application: A074278 | Product #001 | TE Code: AB
Applicant: HIKMA PHARMACEUTICALS USA INC
Approved: Mar 31, 2000 | RLD: No | RS: No | Type: RX